FAERS Safety Report 6614211-8 (Version None)
Quarter: 2010Q1

REPORT INFORMATION
  Report Type: 
  Country: None (occurrence: None)
  Receive Date: 20100304
  Receipt Date: 20100222
  Transmission Date: 20100710
  Serious: Yes (Other)
  Sender: FDA-Public Use
  Company Number: DE-PFIZER INC-2010022508

PATIENT
  Age: 70 Year
  Sex: Male

DRUGS (2)
  1. SORTIS [Suspect]
     Indication: LIPIDS INCREASED
     Dosage: 40 MG, UNK
     Dates: start: 20050101, end: 20100220
  2. ASPIRIN [Concomitant]
     Dosage: UNK

REACTIONS (3)
  - BLOOD AMYLASE INCREASED [None]
  - LIPASE INCREASED [None]
  - MYALGIA [None]
